FAERS Safety Report 11178424 (Version 1)
Quarter: 2015Q2

REPORT INFORMATION
  Report Type: Spontaneous
  Country: US (occurrence: None)
  Receive Date: 20150515
  Receipt Date: 20150515
  Transmission Date: 20150821
  Serious: Yes (Other)
  Sender: FDA-Public Use
  Company Number: 2015007506

PATIENT
  Sex: Male

DRUGS (1)
  1. CIMZIA [Suspect]
     Active Substance: CERTOLIZUMAB PEGOL
     Route: 058

REACTIONS (6)
  - Influenza like illness [None]
  - Myalgia [None]
  - Hepatitis [None]
  - Sinus congestion [None]
  - Hot flush [None]
  - Hypoaesthesia [None]

NARRATIVE: CASE EVENT DATE: 20140613
